FAERS Safety Report 24009742 (Version 1)
Quarter: 2024Q2

REPORT INFORMATION
  Report Type: Spontaneous
  Country: US (occurrence: None)
  Receive Date: 20240624
  Receipt Date: 20240624
  Transmission Date: 20240715
  Serious: Yes (Hospitalization, Other)
  Sender: FDA-Public Use
  Company Number: None

PATIENT
  Age: 61 Year
  Sex: Male

DRUGS (1)
  1. POMALYST [Suspect]
     Active Substance: POMALIDOMIDE
     Indication: Plasma cell myeloma
     Dosage: FREQUENCY : DAILY;?
     Route: 048
     Dates: start: 20200318

REACTIONS (5)
  - Febrile neutropenia [None]
  - Parainfluenzae virus infection [None]
  - Asthenia [None]
  - Therapy change [None]
  - Therapy interrupted [None]

NARRATIVE: CASE EVENT DATE: 20240624
